FAERS Safety Report 6330198-X (Version None)
Quarter: 2009Q3

REPORT INFORMATION
  Report Type: 
  Country: None (occurrence: None)
  Receive Date: 20090827
  Receipt Date: 20090817
  Transmission Date: 20100115
  Serious: Yes (Death)
  Sender: FDA-Public Use
  Company Number: CZ-RANBAXY-2009RR-26063

PATIENT
  Age: 73 Year
  Sex: Male
  Weight: 102 kg

DRUGS (11)
  1. MIDAZOLAM HCL [Suspect]
     Indication: GENERAL ANAESTHESIA
     Dosage: 2 MG, UNK
     Route: 042
  2. RANPISUL [Suspect]
     Indication: PROPHYLAXIS
     Dosage: 1.5 G, UNK
  3. SUFENTANIL [Suspect]
     Indication: GENERAL ANAESTHESIA
     Dosage: 20 UG, UNK
  4. PROPOFOL [Suspect]
     Indication: GENERAL ANAESTHESIA
     Dosage: 180 MG, UNK
  5. ROCURONIUM BROMIDE [Suspect]
     Indication: GENERAL ANAESTHESIA
     Dosage: 50 MG, UNK
  6. EPINEPHRINE [Concomitant]
     Dosage: 4 MG, UNK
     Route: 042
  7. NOREPINEPHRINE BITARTRATE [Concomitant]
     Dosage: 0.2 UG/KG/MIN
  8. METFORMIN HCL [Concomitant]
  9. LEVOTHYROXINE SODIUM [Concomitant]
  10. LOSARTAN [Concomitant]
  11. VERAPAMIL [Concomitant]

REACTIONS (1)
  - ANAPHYLACTIC REACTION [None]
